FAERS Safety Report 16607649 (Version 1)
Quarter: 2019Q3

REPORT INFORMATION
  Report Type: Spontaneous
  Country: JP (occurrence: JP)
  Receive Date: 20190722
  Receipt Date: 20190722
  Transmission Date: 20191004
  Serious: Yes (Other)
  Sender: FDA-Public Use
  Company Number: JP-SA-2019SA193334

PATIENT
  Age: 61 Year
  Sex: Female

DRUGS (3)
  1. TRASTUZUMAB. [Concomitant]
     Active Substance: TRASTUZUMAB
     Indication: HER-2 POSITIVE BREAST CANCER
     Dosage: UNK
     Route: 065
  2. PERTUZUMAB. [Concomitant]
     Active Substance: PERTUZUMAB
     Indication: HER-2 POSITIVE BREAST CANCER
     Dosage: UNK
     Route: 065
  3. TAXOTERE [Suspect]
     Active Substance: DOCETAXEL
     Indication: HER-2 POSITIVE BREAST CANCER
     Dosage: UNK
     Route: 041

REACTIONS (2)
  - Onycholysis [Unknown]
  - Pseudomonas infection [Unknown]
